FAERS Safety Report 14699423 (Version 1)
Quarter: 2018Q1

REPORT INFORMATION
  Report Type: Spontaneous
  Country: US (occurrence: US)
  Receive Date: 20180330
  Receipt Date: 20180330
  Transmission Date: 20180509
  Serious: No
  Sender: FDA-Public Use
  Company Number: US-GLAXOSMITHKLINE-US2018053274

PATIENT
  Age: 60 Year
  Sex: Female

DRUGS (4)
  1. NUCALA [Suspect]
     Active Substance: MEPOLIZUMAB
     Indication: BRONCHITIS CHRONIC
     Dosage: UNK UNK, CYC
     Route: 042
     Dates: start: 201610
  2. TESTOSTERONE BOOSTER [Concomitant]
     Dosage: UNK
  3. NUCALA [Suspect]
     Active Substance: MEPOLIZUMAB
     Dosage: UNK UNK, CYC
     Route: 042
     Dates: start: 20180223
  4. GLUTAMINE [Concomitant]
     Active Substance: GLUTAMINE

REACTIONS (6)
  - Cough [Unknown]
  - Wheezing [Unknown]
  - Bronchitis [Not Recovered/Not Resolved]
  - Product use in unapproved indication [Unknown]
  - Inability to afford medication [Unknown]
  - Drug dose omission [Unknown]

NARRATIVE: CASE EVENT DATE: 20180323
